FAERS Safety Report 5479856-X (Version None)
Quarter: 2007Q4

REPORT INFORMATION
  Report Type: 
  Country: None (occurrence: None)
  Receive Date: 20071003
  Receipt Date: 20070926
  Transmission Date: 20080405
  Serious: Yes (Hospitalization)
  Sender: FDA-Public Use
  Company Number: 2007BI018536

PATIENT
  Age: 42 Year
  Sex: Female
  Weight: 127.9144 kg

DRUGS (1)
  1. AVONEX [Suspect]
     Indication: MULTIPLE SCLEROSIS
     Dosage: 30 UG;QW;IM
     Route: 030
     Dates: start: 19960731

REACTIONS (5)
  - CATHETER SITE INFECTION [None]
  - DRUG INEFFECTIVE [None]
  - HERNIA [None]
  - SCAR [None]
  - STAPHYLOCOCCAL INFECTION [None]
